FAERS Safety Report 16455421 (Version 1)
Quarter: 2019Q2

REPORT INFORMATION
  Report Type: Spontaneous
  Country: AU (occurrence: AU)
  Receive Date: 20190619
  Receipt Date: 20190619
  Transmission Date: 20190711
  Serious: Yes (Other)
  Sender: FDA-Public Use
  Company Number: PHHY2019AU136288

PATIENT
  Age: 5 Year
  Sex: Female

DRUGS (5)
  1. TACROLIMUS. [Suspect]
     Active Substance: TACROLIMUS
     Indication: PRODUCT USED FOR UNKNOWN INDICATION
     Route: 061
  2. PREDNISONE. [Suspect]
     Active Substance: PREDNISONE
     Indication: ASTHMA
     Route: 048
  3. MUPIROCIN. [Suspect]
     Active Substance: MUPIROCIN
     Indication: PRODUCT USED FOR UNKNOWN INDICATION
     Dosage: UNK
     Route: 061
  4. HYDROCORTISONE. [Suspect]
     Active Substance: HYDROCORTISONE
     Indication: PRODUCT USED FOR UNKNOWN INDICATION
     Route: 065
  5. BETAMETHASONE. [Suspect]
     Active Substance: BETAMETHASONE
     Indication: PRODUCT USED FOR UNKNOWN INDICATION
     Dosage: UNK
     Route: 061

REACTIONS (14)
  - Steroid withdrawal syndrome [Unknown]
  - Rash erythematous [Recovered/Resolved]
  - Pain [Unknown]
  - Erythema [Recovered/Resolved]
  - Sensitive skin [Unknown]
  - Skin wrinkling [Recovered/Resolved]
  - Skin infection [Recovered/Resolved]
  - Lymphadenopathy [Unknown]
  - Alopecia [Unknown]
  - Anxiety [Unknown]
  - Skin exfoliation [Recovered/Resolved]
  - Oedema peripheral [Unknown]
  - Temperature regulation disorder [Unknown]
  - Adjustment disorder with depressed mood [Unknown]
